FAERS Safety Report 7682851-3 (Version None)
Quarter: 2011Q3

REPORT INFORMATION
  Report Type: 
  Country: None (occurrence: None)
  Receive Date: 20110815
  Receipt Date: 20110808
  Transmission Date: 20111222
  Serious: Yes (Death)
  Sender: FDA-Public Use
  Company Number: US-CELGENEUS-163-21880-11033083

PATIENT
  Sex: Male

DRUGS (7)
  1. VELCADE [Concomitant]
     Indication: MULTIPLE MYELOMA
     Dosage: 2.8 MILLIGRAM
     Route: 041
     Dates: start: 20071004, end: 20071228
  2. AREDIA [Concomitant]
     Dosage: 90 MILLIGRAM
     Route: 041
     Dates: start: 20071003, end: 20090812
  3. DECADRON [Concomitant]
     Dosage: 20 MILLIGRAM
     Route: 065
     Dates: start: 20080128, end: 20090908
  4. REVLIMID [Suspect]
     Dosage: 10 MILLIGRAM
     Route: 048
     Dates: start: 20090101, end: 20090908
  5. REVLIMID [Suspect]
     Indication: MULTIPLE MYELOMA
     Dosage: 25 MILLIGRAM
     Route: 048
     Dates: start: 20080128
  6. IMMUNE GLOBULIN INTRAVENOUS (HUMAN) [Concomitant]
     Indication: MULTIPLE MYELOMA
     Dosage: 20 GRAM
     Route: 041
     Dates: start: 20071005, end: 20090811
  7. DOXIL [Concomitant]
     Indication: MULTIPLE MYELOMA
     Dosage: 64 MILLIGRAM
     Route: 041
     Dates: start: 20071004, end: 20071228

REACTIONS (1)
  - MULTIPLE MYELOMA [None]
